FAERS Safety Report 5001097-0 (Version None)
Quarter: 2006Q2

REPORT INFORMATION
  Report Type: 
  Country: None (occurrence: None)
  Receive Date: 20060512
  Receipt Date: 20060501
  Transmission Date: 20061013
  Serious: Yes (Congenital Anomaly, Other)
  Sender: FDA-Public Use
  Company Number: US-BRISTOL-MYERS SQUIBB COMPANY-13364633

PATIENT
  Age: 28 Year
  Sex: Female

DRUGS (4)
  1. ZERIT [Suspect]
     Route: 048
     Dates: start: 20060106
  2. COMBIVIR [Suspect]
     Dosage: 600/300
     Route: 048
     Dates: start: 20051114, end: 20060106
  3. VIRACEPT [Suspect]
     Route: 048
     Dates: start: 20051114
  4. EPIVIR [Suspect]
     Route: 048
     Dates: start: 20060106

REACTIONS (6)
  - CRANIAL SUTURES WIDENING [None]
  - FUNISITIS [None]
  - NEONATAL ASPIRATION [None]
  - PHLEBITIS [None]
  - PREGNANCY [None]
  - STILLBIRTH [None]
